FAERS Safety Report 13129814 (Version 1)
Quarter: 2017Q1

REPORT INFORMATION
  Report Type: Spontaneous
  Country: US (occurrence: US)
  Receive Date: 20170118
  Receipt Date: 20170118
  Transmission Date: 20170428
  Serious: Yes (Other)
  Sender: FDA-Public Use
  Company Number: None

PATIENT
  Age: 41 Year
  Sex: Female
  Weight: 82.8 kg

DRUGS (3)
  1. ATORVASTIN [Suspect]
     Active Substance: ATORVASTATIN
     Indication: BLOOD CHOLESTEROL INCREASED
     Dosage: ?          QUANTITY:1 TABLET(S);?
     Route: 048
     Dates: start: 20151106, end: 20170116
  2. VITAMIN D AND B-12 SUBLINGUAL [Concomitant]
  3. LEVOTHYROXINE. [Concomitant]
     Active Substance: LEVOTHYROXINE

REACTIONS (8)
  - Anxiety [None]
  - Confusional state [None]
  - Depression [None]
  - Crying [None]
  - Memory impairment [None]
  - Weight increased [None]
  - Headache [None]
  - Sinusitis [None]

NARRATIVE: CASE EVENT DATE: 20160422
